FAERS Safety Report 9950485 (Version 1)
Quarter: 2014Q1

REPORT INFORMATION
  Report Type: Report from Study
  Country: US (occurrence: US)
  Receive Date: 20140304
  Receipt Date: 20140304
  Transmission Date: 20141002
  Serious: No
  Sender: FDA-Public Use
  Company Number: US-ABBVIE-13P-163-1073093-00

PATIENT
  Age: 28 Year
  Sex: Female

DRUGS (5)
  1. HUMIRA [Suspect]
     Indication: PSORIATIC ARTHROPATHY
     Dates: start: 2011
  2. HUMIRA [Suspect]
     Indication: RHEUMATOID ARTHRITIS
  3. ADDERALL [Concomitant]
     Indication: ATTENTION DEFICIT/HYPERACTIVITY DISORDER
     Dosage: 3-4 TIMES A WEEK
  4. CRYSELLE [Concomitant]
     Indication: CONTRACEPTION
  5. ALEVE [Concomitant]
     Indication: LIMB DISCOMFORT
     Dosage: WHEN SHE WEARS HIGH HEELED SHOES

REACTIONS (4)
  - Injection site bruising [Not Recovered/Not Resolved]
  - Injection site mass [Unknown]
  - Injection site pain [Not Recovered/Not Resolved]
  - Injection site rash [Not Recovered/Not Resolved]
